FAERS Safety Report 9090903 (Version 1)
Quarter: 2013Q1

REPORT INFORMATION
  Report Type: Spontaneous
  Country: US (occurrence: US)
  Receive Date: 20130131
  Receipt Date: 20130131
  Transmission Date: 20140127
  Serious: No
  Sender: FDA-Public Use
  Company Number: PHEH2013US001702

PATIENT
  Age: 92 Year
  Sex: Female

DRUGS (6)
  1. TASIGNA [Suspect]
     Indication: CHRONIC MYELOID LEUKAEMIA
     Dosage: 400 MG, BID
     Route: 048
     Dates: start: 20120305
  2. TASIGNA [Suspect]
     Dosage: UNK
  3. IMODIUM [Concomitant]
     Indication: DIARRHOEA
  4. ALDACTONE [Concomitant]
     Indication: HYPERTENSION
     Dosage: UNK
  5. ALDACTONE [Concomitant]
     Dosage: UNK
  6. TOPROL [Concomitant]
     Indication: HYPERTENSION

REACTIONS (1)
  - Diarrhoea [Unknown]
